FAERS Safety Report 6927869-0 (Version None)
Quarter: 2010Q3

REPORT INFORMATION
  Report Type: 
  Country: None (occurrence: None)
  Receive Date: 20100817
  Receipt Date: 20100805
  Transmission Date: 20110219
  Serious: Yes (Other)
  Sender: FDA-Public Use
  Company Number: FI-PFIZER INC-2010098303

PATIENT
  Age: 75 Year
  Sex: Male

DRUGS (1)
  1. VFEND [Suspect]
     Indication: ASPERGILLOSIS
     Dosage: 50 MG, 2X/DAY
     Route: 048
     Dates: start: 20090101

REACTIONS (4)
  - ALOPECIA [None]
  - ASTHENOPIA [None]
  - EYE DISCHARGE [None]
  - EYE INFECTION [None]
